FAERS Safety Report 13289210 (Version 5)
Quarter: 2018Q2

REPORT INFORMATION
  Report Type: Report from Study
  Country: JP (occurrence: JP)
  Receive Date: 20170302
  Receipt Date: 20180521
  Transmission Date: 20180711
  Serious: Yes (Other)
  Sender: FDA-Public Use
  Company Number: JP-AMGEN-JPNNI2017024745

PATIENT
  Age: 48 Year
  Sex: Male

DRUGS (39)
  1. CARFILZOMIB [Suspect]
     Active Substance: CARFILZOMIB
     Dosage: 27 MG/M2, UNK
     Route: 041
     Dates: start: 20170405, end: 20170406
  2. DEXAMETHASONE. [Concomitant]
     Active Substance: DEXAMETHASONE
     Dosage: 40 MG, QWK
     Dates: start: 20170405, end: 20170419
  3. CARFILZOMIB [Suspect]
     Active Substance: CARFILZOMIB
     Dosage: 22 MG/M2, UNK
     Route: 041
     Dates: start: 20161121, end: 20161122
  4. CARFILZOMIB [Suspect]
     Active Substance: CARFILZOMIB
     Dosage: 27 MG/M2, UNK
     Route: 041
     Dates: start: 20170419, end: 20170420
  5. LENALIDOMIDE [Suspect]
     Active Substance: LENALIDOMIDE
     Dosage: 15 MG, UNK
     Route: 048
     Dates: start: 20170405, end: 20170425
  6. DEXAMETHASONE. [Concomitant]
     Active Substance: DEXAMETHASONE
     Dosage: 40 MG, QWK
     Dates: start: 20161108, end: 20161115
  7. DEXAMETHASONE. [Concomitant]
     Active Substance: DEXAMETHASONE
     Dosage: 40 MG, QWK
     Dates: start: 20161205, end: 20161219
  8. DEXAMETHASONE. [Concomitant]
     Active Substance: DEXAMETHASONE
     Dosage: 40 MG, UNK
     Dates: start: 20170313, end: 20170313
  9. DEXAMETHASONE. [Concomitant]
     Active Substance: DEXAMETHASONE
     Dosage: 40 MG, UNK
     Dates: start: 20170322, end: 20170322
  10. DEXAMETHASONE. [Concomitant]
     Active Substance: DEXAMETHASONE
     Dosage: 20 MG, UNK
     Dates: start: 20170426, end: 20170426
  11. CARFILZOMIB [Suspect]
     Active Substance: CARFILZOMIB
     Dosage: 22 MG/M2, UNK
     Route: 041
     Dates: start: 20170118, end: 20170119
  12. CARFILZOMIB [Suspect]
     Active Substance: CARFILZOMIB
     Dosage: 22 MG/M2, UNK
     Route: 041
     Dates: start: 20170301, end: 20170302
  13. LENALIDOMIDE [Suspect]
     Active Substance: LENALIDOMIDE
     Indication: PLASMA CELL MYELOMA
     Dosage: 15 MG, UNK
     Route: 048
     Dates: start: 20161108, end: 20161128
  14. LENALIDOMIDE [Suspect]
     Active Substance: LENALIDOMIDE
     Dosage: 15 MG, UNK
     Route: 048
     Dates: start: 20161205, end: 20161225
  15. DEXAMETHASONE. [Concomitant]
     Active Substance: DEXAMETHASONE
     Dosage: 40 MG, UNK
     Dates: start: 20161121, end: 20161121
  16. DEXAMETHASONE. [Concomitant]
     Active Substance: DEXAMETHASONE
     Dosage: 40 MG, QWK
     Dates: start: 20170215, end: 20170222
  17. CARFILZOMIB [Suspect]
     Active Substance: CARFILZOMIB
     Dosage: 22 MG/M2, UNK
     Route: 041
     Dates: start: 20161212, end: 20161213
  18. CARFILZOMIB [Suspect]
     Active Substance: CARFILZOMIB
     Dosage: UNK
     Route: 041
  19. LENALIDOMIDE [Suspect]
     Active Substance: LENALIDOMIDE
     Dosage: 15 MG, UNK
     Route: 048
     Dates: start: 20170215, end: 20170307
  20. LENALIDOMIDE [Suspect]
     Active Substance: LENALIDOMIDE
     Dosage: 15 MG, UNK
     Route: 048
     Dates: start: 20170313, end: 20170402
  21. DEXAMETHASONE. [Concomitant]
     Active Substance: DEXAMETHASONE
     Dosage: 20 MG, UNK
     Dates: start: 20170208, end: 20170208
  22. CARFILZOMIB [Suspect]
     Active Substance: CARFILZOMIB
     Dosage: 22 MG/M2, UNK
     Route: 041
     Dates: start: 20161219, end: 20161220
  23. CARFILZOMIB [Suspect]
     Active Substance: CARFILZOMIB
     Dosage: 22 MG/M2, UNK
     Route: 041
     Dates: start: 20170125, end: 20170126
  24. CARFILZOMIB [Suspect]
     Active Substance: CARFILZOMIB
     Dosage: 22 MG/M2, UNK
     Route: 041
     Dates: start: 20170215, end: 20170216
  25. DEXAMETHASONE. [Concomitant]
     Active Substance: DEXAMETHASONE
     Dosage: 20 MG, UNK
     Dates: start: 20161128, end: 20161128
  26. DEXAMETHASONE. [Concomitant]
     Active Substance: DEXAMETHASONE
     Dosage: 40 MG, QWK
     Dates: start: 20170301, end: 20170301
  27. DEXAMETHASONE. [Concomitant]
     Active Substance: DEXAMETHASONE
     Dosage: 20 MG, UNK
     Dates: start: 20170308, end: 20170308
  28. CARFILZOMIB [Suspect]
     Active Substance: CARFILZOMIB
     Indication: PLASMA CELL MYELOMA
     Dosage: 16 MG/M2, UNK
     Route: 041
     Dates: start: 20161108, end: 20161109
  29. CARFILZOMIB [Suspect]
     Active Substance: CARFILZOMIB
     Dosage: 22 MG/M2, UNK
     Route: 041
     Dates: start: 20170222, end: 20170223
  30. ZOVIRAX [Concomitant]
     Active Substance: ACYCLOVIR
  31. CARFILZOMIB [Suspect]
     Active Substance: CARFILZOMIB
     Dosage: 22 MG/M2, UNK
     Route: 041
     Dates: start: 20161115, end: 20161116
  32. CARFILZOMIB [Suspect]
     Active Substance: CARFILZOMIB
     Dosage: 22 MG/M2, UNK
     Route: 041
     Dates: start: 20161205, end: 20161206
  33. CARFILZOMIB [Suspect]
     Active Substance: CARFILZOMIB
     Dosage: 22 MG/M2, UNK
     Route: 041
     Dates: start: 20170322, end: 20170323
  34. CARFILZOMIB [Suspect]
     Active Substance: CARFILZOMIB
     Dosage: 27 MG/M2, UNK
     Route: 041
     Dates: start: 20170412, end: 20170413
  35. LENALIDOMIDE [Suspect]
     Active Substance: LENALIDOMIDE
     Dosage: 15 MG, UNK
     Route: 048
     Dates: start: 20170118, end: 20170207
  36. DEXAMETHASONE. [Concomitant]
     Active Substance: DEXAMETHASONE
     Dosage: 20 MG, UNK
     Dates: start: 20161226, end: 20161226
  37. DEXAMETHASONE. [Concomitant]
     Active Substance: DEXAMETHASONE
     Dosage: 40 MG, QWK
     Dates: start: 20170118, end: 20170201
  38. CARFILZOMIB [Suspect]
     Active Substance: CARFILZOMIB
     Dosage: 22 MG/M2, UNK
     Route: 041
     Dates: start: 20170201, end: 20170202
  39. CARFILZOMIB [Suspect]
     Active Substance: CARFILZOMIB
     Dosage: 22 MG/M2, UNK
     Route: 041
     Dates: start: 20170313, end: 20170314

REACTIONS (4)
  - Cellulitis [Recovered/Resolved]
  - Pulmonary thrombosis [Unknown]
  - Venous thrombosis limb [Unknown]
  - Vascular pain [Recovered/Resolved]

NARRATIVE: CASE EVENT DATE: 20161226
